FAERS Safety Report 16366858 (Version 1)
Quarter: 2019Q2

REPORT INFORMATION
  Report Type: Spontaneous
  Country: US (occurrence: US)
  Receive Date: 20190529
  Receipt Date: 20190529
  Transmission Date: 20190711
  Serious: No
  Sender: FDA-Public Use
  Company Number: US-SA-2019SA141231

PATIENT
  Age: 53 Year
  Sex: Female

DRUGS (1)
  1. DUPIXENT [Suspect]
     Active Substance: DUPILUMAB
     Indication: DERMATITIS ATOPIC
     Dosage: 600 MG, 1X
     Route: 058
     Dates: start: 20190510, end: 20190510

REACTIONS (3)
  - Hypoaesthesia [Recovered/Resolved]
  - Fatigue [Recovered/Resolved]
  - Peripheral coldness [Recovered/Resolved]

NARRATIVE: CASE EVENT DATE: 20190510
